FAERS Safety Report 9904327 (Version 1)
Quarter: 2014Q1

REPORT INFORMATION
  Report Type: Spontaneous
  Country: US (occurrence: US)
  Receive Date: 20140218
  Receipt Date: 20140218
  Transmission Date: 20141002
  Serious: No
  Sender: FDA-Public Use
  Company Number: US-PFIZER INC-2014043852

PATIENT
  Age: 74 Year
  Sex: Female
  Weight: 104 kg

DRUGS (5)
  1. VENLAFAXINE HCL [Suspect]
     Dosage: UNK
     Route: 048
  2. VENLAFAXINE HCL [Suspect]
     Dosage: UNK (WEANING OFF)
     Route: 048
  3. CRESTOR [Concomitant]
     Dosage: UNK
  4. ZETIA [Concomitant]
     Dosage: UNK
  5. PERCOCET [Concomitant]
     Dosage: UNK

REACTIONS (2)
  - Drug ineffective [Unknown]
  - Burning sensation [Unknown]
